FAERS Safety Report 24784125 (Version 1)
Quarter: 2024Q4

REPORT INFORMATION
  Report Type: Spontaneous
  Country: BR (occurrence: BR)
  Receive Date: 20241227
  Receipt Date: 20241227
  Transmission Date: 20250114
  Serious: Yes (Death, Hospitalization, Other)
  Sender: AIPING PHARMACEUTICAL
  Company Number: BR-AIPING-2024AILIT00037

PATIENT
  Age: 42 Year
  Sex: Male

DRUGS (3)
  1. ALLOPURINOL [Suspect]
     Active Substance: ALLOPURINOL
     Indication: Product used for unknown indication
     Route: 048
  2. COLCHICINE [Suspect]
     Active Substance: COLCHICINE
     Indication: Product used for unknown indication
     Route: 048
  3. ACETAMINOPHEN [Suspect]
     Active Substance: ACETAMINOPHEN
     Indication: Product used for unknown indication
     Route: 048

REACTIONS (9)
  - Hepatic failure [Fatal]
  - Anuria [Fatal]
  - Arrhythmia [Fatal]
  - Coma [Fatal]
  - Coagulopathy [Fatal]
  - Renal failure [Fatal]
  - Intentional overdose [Unknown]
  - Toxicity to various agents [Unknown]
  - Intentional product misuse [Unknown]
